FAERS Safety Report 4308843-X (Version None)
Quarter: 2004Q1

REPORT INFORMATION
  Report Type: 
  Country: None (occurrence: None)
  Receive Date: 20040301
  Receipt Date: 20040301
  Transmission Date: 20041129
  Serious: Yes (Hospitalization)
  Sender: FDA-Public Use
  Company Number: None

PATIENT
  Age: 59 Year
  Sex: Female
  Weight: 66.7 kg

DRUGS (15)
  1. DEPAKOTE [Suspect]
     Indication: BIPOLAR DISORDER
     Dosage: 2500 MG QD TOTAL
  2. DEPAKOTE [Suspect]
     Indication: DEMENTIA
     Dosage: 2500 MG QD TOTAL
  3. DEPAKOTE [Suspect]
     Indication: SCHIZOAFFECTIVE DISORDER
     Dosage: 2500 MG QD TOTAL
  4. NAVANE [Suspect]
     Dosage: 300 MG QD
  5. BENADRYL [Suspect]
     Dosage: TOTAL 25 MG QHS
  6. ASPIRIN [Concomitant]
  7. NOVOLIN 70/30 [Concomitant]
  8. ATENOLOL [Concomitant]
  9. DOCUSATE [Concomitant]
  10. PREMARIN [Concomitant]
  11. RANITIDINE [Concomitant]
  12. LORAZEPAM [Concomitant]
  13. LOPERAMIDE HCL [Concomitant]
  14. ACETAMINOPHEN [Concomitant]
  15. DITROPAN [Concomitant]

REACTIONS (13)
  - ASTHENIA [None]
  - BRADYKINESIA [None]
  - COGWHEEL RIGIDITY [None]
  - EXTRAPYRAMIDAL DISORDER [None]
  - FALL [None]
  - FATIGUE [None]
  - HYPERTONIA [None]
  - IRRITABILITY [None]
  - LETHARGY [None]
  - MARKEDLY REDUCED DIETARY INTAKE [None]
  - PARKINSONISM [None]
  - THIRST [None]
  - TREMOR [None]
